FAERS Safety Report 9653253 (Version 2)
Quarter: 2013Q4

REPORT INFORMATION
  Report Type: Spontaneous
  Country: US (occurrence: None)
  Receive Date: 20131028
  Receipt Date: 20131224
  Transmission Date: 20140711
  Serious: Yes (Hospitalization, Other)
  Sender: FDA-Public Use
  Company Number: 2013US002703

PATIENT
  Age: 51 Year
  Sex: Male

DRUGS (1)
  1. ICLUSIG [Suspect]
     Route: 048
     Dates: start: 201308, end: 2013

REACTIONS (4)
  - Splenic rupture [None]
  - Pyrexia [None]
  - Pancytopenia [None]
  - Disease progression [None]
